FAERS Safety Report 4699505-8 (Version None)
Quarter: 2005Q2

REPORT INFORMATION
  Report Type: 
  Country: None (occurrence: None)
  Receive Date: 20050622
  Receipt Date: 20050606
  Transmission Date: 20051028
  Serious: Yes (Death, Other)
  Sender: FDA-Public Use
  Company Number: PHNU2005DE01900

PATIENT
  Age: 78 Year
  Sex: Male
  Weight: 84.0062 kg

DRUGS (1)
  1. VISUDYNE [Suspect]
     Dosage: 0.6 ML DAILY IV
     Route: 042
     Dates: start: 20050316, end: 20050316

REACTIONS (9)
  - CEREBRAL ATHEROSCLEROSIS [None]
  - CEREBROVASCULAR ACCIDENT [None]
  - DIARRHOEA [None]
  - GASTROINTESTINAL NEOPLASM [None]
  - LEG AMPUTATION [None]
  - NEOPLASM RECURRENCE [None]
  - PERIPHERAL VASCULAR DISORDER [None]
  - PHLEBOTHROMBOSIS [None]
  - VOMITING [None]
